FAERS Safety Report 11802200 (Version 1)
Quarter: 2015Q4

REPORT INFORMATION
  Report Type: Spontaneous
  Country: FR (occurrence: FR)
  Receive Date: 20151204
  Receipt Date: 20151204
  Transmission Date: 20160305
  Serious: Yes (Death, Hospitalization, Other)
  Sender: FDA-Public Use
  Company Number: FR-PFIZER INC-2015424716

PATIENT
  Age: 84 Year
  Sex: Female

DRUGS (2)
  1. COLCHICINE. [Suspect]
     Active Substance: COLCHICINE
     Indication: GOUT
     Dosage: 1 MG, DAILY
     Route: 048
     Dates: start: 201509
  2. CORDARONE [Suspect]
     Active Substance: AMIODARONE HYDROCHLORIDE
     Dosage: UNK
     Route: 048

REACTIONS (12)
  - Liver function test abnormal [Unknown]
  - Diarrhoea [Fatal]
  - Rhabdomyolysis [Unknown]
  - Cardiac failure [Fatal]
  - Platelet count decreased [Unknown]
  - White blood cell count decreased [Unknown]
  - Multi-organ failure [Fatal]
  - Confusional state [Fatal]
  - Aspergillus infection [Unknown]
  - Acute kidney injury [Fatal]
  - Acute respiratory distress syndrome [Fatal]
  - Neutrophil count decreased [Unknown]

NARRATIVE: CASE EVENT DATE: 20151023
